FAERS Safety Report 10267086 (Version 2)
Quarter: 2014Q2

REPORT INFORMATION
  Report Type: Spontaneous
  Country: US (occurrence: US)
  Receive Date: 20140630
  Receipt Date: 20140630
  Transmission Date: 20141212
  Serious: No
  Sender: FDA-Public Use
  Company Number: US-SHIRE-US201403026

PATIENT
  Age: 36 Year
  Sex: Female
  Weight: 75.74 kg

DRUGS (1)
  1. CINRYZE [Suspect]
     Indication: HEREDITARY ANGIOEDEMA
     Dosage: 1000 UNITS, OTHER (Q 3-4 DAYS)
     Route: 042
     Dates: start: 20131126

REACTIONS (1)
  - Hereditary angioedema [Recovered/Resolved]
